FAERS Safety Report 12378425 (Version 3)
Quarter: 2016Q3

REPORT INFORMATION
  Report Type: Spontaneous
  Country: US (occurrence: US)
  Receive Date: 20160517
  Receipt Date: 20160708
  Transmission Date: 20161109
  Serious: No
  Sender: FDA-Public Use
  Company Number: US-BAYER-2016-090407

PATIENT
  Age: 4 Year
  Sex: Female
  Weight: 15.87 kg

DRUGS (1)
  1. MIRALAX [Suspect]
     Active Substance: POLYETHYLENE GLYCOL 3350
     Indication: CONSTIPATION
     Dosage: 1 DF, UNK
     Route: 048
     Dates: start: 2014

REACTIONS (5)
  - Poor quality drug administered [None]
  - Product physical consistency issue [None]
  - Drug ineffective [None]
  - Product use issue [None]
  - Abdominal pain upper [None]

NARRATIVE: CASE EVENT DATE: 2014
